FAERS Safety Report 7420527-8 (Version None)
Quarter: 2011Q2

REPORT INFORMATION
  Report Type: 
  Country: None (occurrence: None)
  Receive Date: 20110407
  Receipt Date: 20110323
  Transmission Date: 20111010
  Serious: Yes (Hospitalization, Other)
  Sender: FDA-Public Use
  Company Number: AUR-APL-2010-02085

PATIENT
  Age: 49 Year
  Sex: Female
  Weight: 56.24 kg

DRUGS (14)
  1. PROPOXYPHENE HCL AND ACETAMINOPHEN [Concomitant]
  2. CHANTIX [Suspect]
     Indication: SMOKING CESSATION THERAPY
     Dosage: 0.5MG, DAILY, ORAL
     Route: 048
     Dates: start: 20070101
  3. CHANTIX [Suspect]
     Indication: SMOKING CESSATION THERAPY
     Dosage: 0.5MG, QD
     Dates: start: 20100519, end: 20100601
  4. ASPIRIN [Concomitant]
  5. SINGULAIR [Concomitant]
  6. PREMARIN [Concomitant]
  7. MIRAPEX [Concomitant]
  8. PROMETHAZINE [Concomitant]
  9. TOPIRAMATE [Suspect]
     Indication: CONVULSION
     Dosage: 200MG, BID, ORAL
     Route: 048
  10. CHANTIX [Suspect]
     Indication: SMOKING CESSATION THERAPY
     Dosage: 1MG, BID, ORAL
     Route: 048
     Dates: start: 20100101, end: 20100601
  11. CARISOPRODOL [Concomitant]
  12. NABUMETONE [Concomitant]
  13. XOPENEX [Concomitant]
  14. LORAZEPAM [Concomitant]

REACTIONS (26)
  - TREMOR [None]
  - DRUG INEFFECTIVE [None]
  - MALNUTRITION [None]
  - DIABETES MELLITUS [None]
  - GALLBLADDER NON-FUNCTIONING [None]
  - HALLUCINATION [None]
  - COLONIC STENOSIS [None]
  - OSTEOPENIA [None]
  - DEHYDRATION [None]
  - VOMITING [None]
  - BRONCHITIS BACTERIAL [None]
  - NAUSEA [None]
  - CONVULSION [None]
  - STARING [None]
  - HAIR DISORDER [None]
  - AORTIC STENOSIS [None]
  - SUICIDAL IDEATION [None]
  - FEELING ABNORMAL [None]
  - AMAUROSIS FUGAX [None]
  - ANXIETY [None]
  - CHEST PAIN [None]
  - PALPITATIONS [None]
  - FIBROMYALGIA [None]
  - BRONCHITIS CHRONIC [None]
  - DEPRESSION [None]
  - RESTLESS LEGS SYNDROME [None]
